FAERS Safety Report 7639069-X (Version None)
Quarter: 2011Q3

REPORT INFORMATION
  Report Type: 
  Country: None (occurrence: None)
  Receive Date: 20110726
  Receipt Date: 20110726
  Transmission Date: 20111222
  Serious: Yes (Hospitalization)
  Sender: FDA-Public Use
  Company Number: None

PATIENT
  Age: 81 Year
  Sex: Male
  Weight: 117.3 kg

DRUGS (1)
  1. METOPROLOL TARTRATE [Suspect]
     Indication: ATRIAL FIBRILLATION
     Dosage: 25 MG BID PO
     Route: 048
     Dates: start: 20050902, end: 20110721

REACTIONS (4)
  - BRADYCARDIA [None]
  - FATIGUE [None]
  - RHYTHM IDIOVENTRICULAR [None]
  - DYSPNOEA [None]
